FAERS Safety Report 9364893 (Version 4)
Quarter: 2014Q4

REPORT INFORMATION
  Report Type: Report from Study
  Country: JP (occurrence: JP)
  Receive Date: 20130624
  Receipt Date: 20141112
  Transmission Date: 20150529
  Serious: Yes (Hospitalization)
  Sender: FDA-Public Use
  Company Number: JP-GLAXOSMITHKLINE-B0899734A

PATIENT

DRUGS (14)
  1. DEPAS [Concomitant]
     Active Substance: ETIZOLAM
     Indication: INSOMNIA
     Route: 048
  2. RHYTHMY [Concomitant]
     Active Substance: RILMAZAFONE HYDROCHLORIDE
     Route: 048
  3. PAZOPANIB [Suspect]
     Active Substance: PAZOPANIB
     Indication: PLEOMORPHIC MALIGNANT FIBROUS HISTIOCYTOMA
     Route: 048
     Dates: start: 20130517, end: 20130528
  4. PAZOPANIB [Suspect]
     Active Substance: PAZOPANIB
     Indication: PLEOMORPHIC MALIGNANT FIBROUS HISTIOCYTOMA
     Route: 048
     Dates: start: 20130604
  5. ROZEREM [Concomitant]
     Active Substance: RAMELTEON
     Indication: INSOMNIA
     Dosage: UNK
     Route: 048
  6. PROMAC [Concomitant]
     Active Substance: NITROFURANTOIN
     Indication: STOMATITIS
     Dosage: UNK
     Route: 048
  7. GLIMEPIRIDE OD [Concomitant]
     Indication: DIABETES MELLITUS
     Dosage: UNK
     Route: 048
  8. PAZOPANIB [Suspect]
     Active Substance: PAZOPANIB
     Indication: PLEOMORPHIC MALIGNANT FIBROUS HISTIOCYTOMA
     Route: 048
     Dates: start: 20130529, end: 20130603
  9. TETRAMIDE [Concomitant]
     Active Substance: MIANSERIN
     Indication: INSOMNIA
     Dosage: UNK
     Route: 048
  10. UREPEARL [Concomitant]
     Active Substance: UREA
     Route: 050
  11. JANUVIA [Concomitant]
     Active Substance: SITAGLIPTIN PHOSPHATE
     Indication: DIABETES MELLITUS
     Dosage: UNK
     Route: 048
  12. LEVEMIR [Concomitant]
     Active Substance: INSULIN DETEMIR
     Indication: DIABETES MELLITUS
     Dosage: UNK
     Route: 058
  13. AMOBAN [Concomitant]
     Active Substance: ZOPICLONE
     Indication: INSOMNIA
     Route: 048
  14. LEUPLIN [Concomitant]
     Active Substance: LEUPROLIDE ACETATE
     Indication: PLEOMORPHIC MALIGNANT FIBROUS HISTIOCYTOMA
     Route: 058

REACTIONS (6)
  - Platelet count decreased [Recovered/Resolved]
  - Upper respiratory tract inflammation [Recovered/Resolved]
  - Oedema [Not Recovered/Not Resolved]
  - Hair colour changes [Not Recovered/Not Resolved]
  - Dysphonia [Not Recovered/Not Resolved]
  - Protein urine [Unknown]

NARRATIVE: CASE EVENT DATE: 20130518
